FAERS Safety Report 20124901 (Version 1)
Quarter: 2021Q4

REPORT INFORMATION
  Report Type: Spontaneous
  Country: US (occurrence: None)
  Receive Date: 20211126
  Receipt Date: 20211126
  Transmission Date: 20220304
  Serious: Yes (Hospitalization)
  Sender: FDA-Public Use
  Company Number: None

PATIENT
  Age: 41 Year
  Sex: Female

DRUGS (1)
  1. AMBRISENTAN [Suspect]
     Active Substance: AMBRISENTAN
     Indication: Pulmonary arterial hypertension
     Dosage: FREQUENCY : DAILY;?
     Route: 048
     Dates: start: 20191017

REACTIONS (7)
  - Chest pain [None]
  - Nausea [None]
  - Dizziness [None]
  - Hypervolaemia [None]
  - Right ventricular failure [None]
  - Condition aggravated [None]
  - Treatment noncompliance [None]

NARRATIVE: CASE EVENT DATE: 20211125
